FAERS Safety Report 8620560-4 (Version None)
Quarter: 2012Q3

REPORT INFORMATION
  Report Type: 
  Country: None (occurrence: None)
  Receive Date: 20120824
  Receipt Date: 20120813
  Transmission Date: 20120928
  Serious: Yes (Other)
  Sender: FDA-Public Use
  Company Number: US-ACTELION-A-NJ2012-70059

PATIENT
  Age: 53 Year
  Sex: Female

DRUGS (1)
  1. EPOPROSTENOL SODIUM [Suspect]
     Indication: DIGITAL ULCER
     Dosage: 2.12 NG/KG, PER MIN
     Route: 041
     Dates: start: 20120626

REACTIONS (2)
  - CATHETER SITE HAEMORRHAGE [None]
  - OSTEOMYELITIS [None]
